FAERS Safety Report 4543297-X (Version None)
Quarter: 2005Q1

REPORT INFORMATION
  Report Type: 
  Country: None (occurrence: None)
  Receive Date: 20041223
  Receipt Date: 20041109
  Transmission Date: 20050727
  Serious: No
  Sender: FDA-Public Use
  Company Number: US-JNJFOC-20041102931

PATIENT
  Age: 25 Year
  Sex: Female
  Weight: 44.4525 kg

DRUGS (2)
  1. ORTHO EVRA [Suspect]
     Indication: CONTRACEPTION
     Dosage: 1 DOSE(S), 3 IN 4 WEEK, TRANSDERMAL
     Route: 062
     Dates: start: 20041023
  2. MULTIVITAMIN [Concomitant]

REACTIONS (7)
  - APPLICATION SITE IRRITATION [None]
  - BREAST TENDERNESS [None]
  - HEADACHE [None]
  - HYPERTROPHY BREAST [None]
  - NASOPHARYNGITIS [None]
  - NAUSEA [None]
  - VOMITING [None]
